FAERS Safety Report 13290394 (Version 2)
Quarter: 2017Q1

REPORT INFORMATION
  Report Type: Spontaneous
  Country: FR (occurrence: FR)
  Receive Date: 20170302
  Receipt Date: 20170302
  Transmission Date: 20170428
  Serious: Yes (Hospitalization, Other)
  Sender: FDA-Public Use
  Company Number: FR-PFIZER INC-2017087000

PATIENT
  Age: 54 Year
  Sex: Female

DRUGS (4)
  1. IXPRIM [Suspect]
     Active Substance: ACETAMINOPHEN\TRAMADOL HYDROCHLORIDE
     Dosage: UNK
     Route: 048
  2. LYRICA [Suspect]
     Active Substance: PREGABALIN
     Dosage: UNK
     Route: 048
  3. PARACETAMOL CODEINE [Suspect]
     Active Substance: ACETAMINOPHEN\CODEINE PHOSPHATE
     Dosage: UNK
     Route: 048
  4. LEXOMIL ROCHE [Suspect]
     Active Substance: BROMAZEPAM
     Dosage: UNK
     Route: 048

REACTIONS (6)
  - Subarachnoid haemorrhage [Unknown]
  - Craniocerebral injury [Recovering/Resolving]
  - Toxicity to various agents [Unknown]
  - Coma [Recovering/Resolving]
  - Subcutaneous haematoma [Unknown]
  - Suicidal ideation [Unknown]

NARRATIVE: CASE EVENT DATE: 201702
